FAERS Safety Report 21337277 (Version 1)
Quarter: 2022Q3

REPORT INFORMATION
  Report Type: Spontaneous
  Country: MX (occurrence: None)
  Receive Date: 20220915
  Receipt Date: 20220915
  Transmission Date: 20221026
  Serious: Yes (Other)
  Sender: FDA-Public Use
  Company Number: 2022A315818

PATIENT
  Sex: Male
  Weight: 70 kg

DRUGS (1)
  1. DAPAGLIFLOZIN [Suspect]
     Active Substance: DAPAGLIFLOZIN
     Route: 048
     Dates: start: 20220801, end: 20220905

REACTIONS (3)
  - Infection [Recovering/Resolving]
  - Dysuria [Recovering/Resolving]
  - Urethral discharge [Unknown]

NARRATIVE: CASE EVENT DATE: 20220810
